FAERS Safety Report 8901838 (Version 1)
Quarter: 2012Q4

REPORT INFORMATION
  Report Type: Spontaneous
  Country: US (occurrence: None)
  Receive Date: 20121107
  Receipt Date: 20121107
  Transmission Date: 20130627
  Serious: Yes (Hospitalization)
  Sender: FDA-Public Use
  Company Number: FK201203237

PATIENT
  Age: 83 Year
  Sex: Male
  Weight: 116.4 kg

DRUGS (2)
  1. DEXAMETHASONE SODIUM PHOSPHATE [Suspect]
     Route: 048
     Dates: start: 20120320, end: 20120727
  2. VELCADE [Suspect]
     Dosage: Days 1, 4, 8 and 11,  (not otherwise specified))
     Route: 042
     Dates: start: 20120320, end: 20120727

REACTIONS (2)
  - Cellulitis [None]
  - Dyspnoea [None]
